FAERS Safety Report 17463364 (Version 1)
Quarter: 2020Q1

REPORT INFORMATION
  Report Type: Spontaneous
  Country: CA (occurrence: CA)
  Receive Date: 20200226
  Receipt Date: 20200226
  Transmission Date: 20200409
  Serious: Yes (Hospitalization)
  Sender: FDA-Public Use
  Company Number: CA-SHIRE-CA202006822

PATIENT

DRUGS (22)
  1. DOMPERIDONE [Suspect]
     Active Substance: DOMPERIDONE
     Indication: NAUSEA
  2. PROCHLORPERAZINE. [Suspect]
     Active Substance: PROCHLORPERAZINE
     Indication: VOMITING
     Route: 065
  3. 555 (PRUCALOPRIDE) [Suspect]
     Active Substance: PRUCALOPRIDE
     Indication: NAUSEA
  4. DIMENHYDRINATE. [Suspect]
     Active Substance: DIMENHYDRINATE
     Indication: VOMITING
     Route: 065
  5. DOMPERIDONE [Suspect]
     Active Substance: DOMPERIDONE
     Indication: VOMITING
     Route: 065
  6. OLANZAPINE MYLAN [Suspect]
     Active Substance: OLANZAPINE
     Indication: VOMITING
     Route: 065
  7. PANTOPRAZOLE MYLAN [Suspect]
     Active Substance: PANTOPRAZOLE SODIUM
     Indication: NAUSEA
  8. NABILONE [Suspect]
     Active Substance: NABILONE
     Indication: NAUSEA
  9. PROCHLORPERAZINE. [Suspect]
     Active Substance: PROCHLORPERAZINE
     Indication: NAUSEA
  10. OLANZAPINE. [Suspect]
     Active Substance: OLANZAPINE
     Indication: VOMITING
     Route: 065
  11. 555 (PRUCALOPRIDE) [Suspect]
     Active Substance: PRUCALOPRIDE
     Indication: VOMITING
     Route: 065
  12. METOCLOPRAMIDE. [Suspect]
     Active Substance: METOCLOPRAMIDE
     Indication: VOMITING
     Route: 065
  13. APREPITANT. [Suspect]
     Active Substance: APREPITANT
     Indication: NAUSEA
  14. ONDANSETRON [Suspect]
     Active Substance: ONDANSETRON
     Indication: VOMITING
     Route: 065
  15. PANTOPRAZOLE MYLAN [Suspect]
     Active Substance: PANTOPRAZOLE SODIUM
     Indication: VOMITING
     Route: 065
  16. DIMENHYDRINATE. [Suspect]
     Active Substance: DIMENHYDRINATE
     Indication: NAUSEA
  17. METOCLOPRAMIDE. [Suspect]
     Active Substance: METOCLOPRAMIDE
     Indication: NAUSEA
  18. NABILONE [Suspect]
     Active Substance: NABILONE
     Indication: VOMITING
     Dosage: 0.5 MILLIGRAM, 2X/DAY:BID
     Route: 065
  19. OLANZAPINE MYLAN [Suspect]
     Active Substance: OLANZAPINE
     Indication: NAUSEA
  20. ONDANSETRON [Suspect]
     Active Substance: ONDANSETRON
     Indication: NAUSEA
  21. APREPITANT. [Suspect]
     Active Substance: APREPITANT
     Indication: VOMITING
     Dosage: 80 MILLIGRAM, 1X/DAY:QD
     Route: 065
  22. OLANZAPINE. [Suspect]
     Active Substance: OLANZAPINE
     Indication: NAUSEA

REACTIONS (2)
  - Off label use [Unknown]
  - Treatment failure [Unknown]
